FAERS Safety Report 22610898 (Version 1)
Quarter: 2023Q2

REPORT INFORMATION
  Report Type: Spontaneous
  Country: US (occurrence: US)
  Receive Date: 20230616
  Receipt Date: 20230616
  Transmission Date: 20230722
  Serious: No
  Sender: FDA-Public Use
  Company Number: US-SIGMAPHARM LABORATORIES, LLC-2023SIG00033

PATIENT
  Age: 30 Year
  Sex: Male

DRUGS (1)
  1. ASENAPINE [Suspect]
     Active Substance: ASENAPINE
     Route: 060

REACTIONS (3)
  - Product solubility abnormal [Unknown]
  - Underdose [Unknown]
  - Drug ineffective [Unknown]
